FAERS Safety Report 5630604-X (Version None)
Quarter: 2008Q1

REPORT INFORMATION
  Report Type: 
  Country: None (occurrence: None)
  Receive Date: 20080219
  Receipt Date: 20080210
  Transmission Date: 20080703
  Serious: Yes (Hospitalization)
  Sender: FDA-Public Use
  Company Number: PH-AVENTIS-200811463GDDC

PATIENT
  Age: 63 Year
  Sex: Female

DRUGS (10)
  1. LANTUS [Suspect]
     Route: 058
     Dates: start: 20080208, end: 20080211
  2. ASPIRIN [Suspect]
     Route: 048
     Dates: start: 20080120, end: 20080210
  3. PURINASE [Suspect]
     Route: 048
     Dates: start: 20080120, end: 20080210
  4. MICARDIS HCT [Suspect]
     Dosage: DOSE: 40/12.5
     Route: 048
     Dates: start: 20080205, end: 20080210
  5. COMBIZAR [Concomitant]
     Dosage: DOSE: 50/12.5
     Route: 048
     Dates: start: 20080120, end: 20080205
  6. GLUCOVANCE                         /01503701/ [Concomitant]
     Dosage: DOSE: 500/5
     Route: 048
     Dates: start: 20080120, end: 20080205
  7. GLUCOVANCE                         /01503701/ [Concomitant]
     Dosage: DOSE: 500/5
     Route: 048
     Dates: start: 20080206, end: 20080210
  8. LACIPIL [Concomitant]
     Route: 048
     Dates: start: 20080120, end: 20080205
  9. LACIPIL [Concomitant]
     Route: 048
     Dates: start: 20080206
  10. CRESTOR [Concomitant]
     Route: 048
     Dates: start: 20080206, end: 20080210

REACTIONS (6)
  - EYE DISCHARGE [None]
  - EYE SWELLING [None]
  - LIP SWELLING [None]
  - MOUTH ULCERATION [None]
  - RASH ERYTHEMATOUS [None]
  - STEVENS-JOHNSON SYNDROME [None]
